FAERS Safety Report 24614024 (Version 5)
Quarter: 2024Q4

REPORT INFORMATION
  Report Type: Spontaneous
  Country: CN (occurrence: CN)
  Receive Date: 20241113
  Receipt Date: 20241225
  Transmission Date: 20250115
  Serious: Yes (Hospitalization)
  Sender: NOVARTIS
  Company Number: CN-002147023-NVSC2024CN216429

PATIENT
  Age: 55 Year
  Sex: Male
  Weight: 78 kg

DRUGS (4)
  1. COSENTYX [Suspect]
     Active Substance: SECUKINUMAB
     Indication: Psoriasis
     Dosage: 0.3 G, QW (2 INJECTIONS) (3 DOSES)
     Route: 058
     Dates: start: 20241016
  2. FLUTICASONE PROPIONATE [Concomitant]
     Active Substance: FLUTICASONE PROPIONATE
     Indication: Product used for unknown indication
     Dosage: 15 G (1 PIECE, APPROPRIATE AMOUNT, FOR EXTERNAL USE, 2-3 TIMES A DAY)
     Route: 065
  3. DESONIDE [Concomitant]
     Active Substance: DESONIDE
     Indication: Product used for unknown indication
     Dosage: 15 G, QD (2 PIECES, APPROPRIATE AMOUNT, FOR EXTERNAL USE)
     Route: 065
  4. AMLODIPINE BESYLATE [Concomitant]
     Active Substance: AMLODIPINE BESYLATE
     Indication: Product used for unknown indication
     Dosage: 5 MG, QD
     Route: 048

REACTIONS (9)
  - Drug hypersensitivity [Unknown]
  - Stevens-Johnson syndrome [Recovering/Resolving]
  - Discomfort [Not Recovered/Not Resolved]
  - Pyrexia [Recovering/Resolving]
  - Inflammation [Recovering/Resolving]
  - Skin disorder [Recovering/Resolving]
  - Skin ulcer [Recovering/Resolving]
  - Drug eruption [Recovering/Resolving]
  - Drug ineffective [Unknown]

NARRATIVE: CASE EVENT DATE: 20241001
